FAERS Safety Report 4817603-2 (Version None)
Quarter: 2005Q4

REPORT INFORMATION
  Report Type: 
  Country: None (occurrence: None)
  Receive Date: 20051031
  Receipt Date: 20051021
  Transmission Date: 20060501
  Serious: Yes (Hospitalization)
  Sender: FDA-Public Use
  Company Number: 2005ADE/NIFED-009

PATIENT
  Age: 14 Year
  Sex: Female

DRUGS (1)
  1. NIFEDIPINE [Suspect]
     Indication: HYPERTENSION
     Dosage: 40MG

REACTIONS (15)
  - ABDOMINAL PAIN [None]
  - AREFLEXIA [None]
  - ASTHENIA [None]
  - BRADYCARDIA [None]
  - CIRCULATORY COLLAPSE [None]
  - CONFUSIONAL STATE [None]
  - CYANOSIS [None]
  - DIARRHOEA [None]
  - HALLUCINATION, VISUAL [None]
  - HYPOTENSION [None]
  - PARALYSIS FLACCID [None]
  - PERIPHERAL SENSORY NEUROPATHY [None]
  - PORPHYRIA ACUTE [None]
  - TACHYCARDIA [None]
  - VOMITING [None]
